FAERS Safety Report 17895810 (Version 1)
Quarter: 2020Q2

REPORT INFORMATION
  Report Type: Spontaneous
  Country: US (occurrence: US)
  Receive Date: 20200615
  Receipt Date: 20200615
  Transmission Date: 20200714
  Serious: No
  Sender: FDA-Public Use
  Company Number: US-GLAXOSMITHKLINE-US2020AMR095971

PATIENT
  Sex: Female

DRUGS (1)
  1. ZEJULA [Suspect]
     Active Substance: NIRAPARIB
     Dosage: 300 MG, QD
     Dates: start: 20200520

REACTIONS (5)
  - Abdominal pain upper [Unknown]
  - Vomiting [Unknown]
  - Product monitoring error [Unknown]
  - Nausea [Unknown]
  - Constipation [Unknown]
